FAERS Safety Report 9254845 (Version 5)
Quarter: 2015Q1

REPORT INFORMATION
  Report Type: Spontaneous
  Country: US (occurrence: US)
  Receive Date: 20130425
  Receipt Date: 20150318
  Transmission Date: 20150721
  Serious: Yes (Death, Hospitalization, Other)
  Sender: FDA-Public Use
  Company Number: US-MERCK-1304USA014848

PATIENT
  Sex: Female
  Weight: 82.54 kg

DRUGS (1)
  1. JANUVIA [Suspect]
     Active Substance: SITAGLIPTIN PHOSPHATE
     Indication: TYPE 2 DIABETES MELLITUS
     Dosage: 100 MG, QD
     Route: 048
     Dates: start: 20100626

REACTIONS (29)
  - Hypoglycaemia [Unknown]
  - Hiatus hernia [Unknown]
  - Hypertension [Recovered/Resolved]
  - Ileus [Unknown]
  - Osteosclerosis [Unknown]
  - Metastases to bone [Unknown]
  - Pancytopenia [Unknown]
  - Pancreatic atrophy [Unknown]
  - Pulmonary mass [Unknown]
  - Gastric varices [Unknown]
  - Renal cyst [Unknown]
  - Hypotension [Unknown]
  - Metastases to liver [Unknown]
  - Venous stenosis [Unknown]
  - Dehydration [Unknown]
  - Uterine leiomyoma [Unknown]
  - Gastrooesophageal reflux disease [Unknown]
  - Pancreatic carcinoma metastatic [Fatal]
  - Lymphadenopathy [Unknown]
  - Splenic vein thrombosis [Not Recovered/Not Resolved]
  - Thrombocytopenia [Unknown]
  - Abdominal distension [Unknown]
  - Diverticulum [Unknown]
  - Portal vein stenosis [Unknown]
  - Decreased appetite [Unknown]
  - Anaemia [Unknown]
  - Depression [Unknown]
  - Anxiety [Unknown]
  - Constipation [Recovering/Resolving]

NARRATIVE: CASE EVENT DATE: 20120416
